FAERS Safety Report 5859671-5 (Version None)
Quarter: 2008Q3

REPORT INFORMATION
  Report Type: 
  Country: None (occurrence: None)
  Receive Date: 20080827
  Receipt Date: 20080815
  Transmission Date: 20090109
  Serious: Yes (Other)
  Sender: FDA-Public Use
  Company Number: GB-WATSON-2008-05011

PATIENT
  Sex: Female

DRUGS (1)
  1. KENTERA (WATSON LABORATORIES) [Suspect]
     Indication: DRUG USE FOR UNKNOWN INDICATION
     Dosage: 3.9 MG, DAILY
     Route: 062
     Dates: start: 20080201

REACTIONS (1)
  - PULMONARY OEDEMA [None]
